APPROVED DRUG PRODUCT: MAGNESIUM SULFATE IN PLASTIC CONTAINER
Active Ingredient: MAGNESIUM SULFATE
Strength: 4GM/50ML (80MG/ML)
Dosage Form/Route: INJECTABLE;INJECTION
Application: A209642 | Product #003 | TE Code: AP
Applicant: MILLA PHARMACEUTICALS INC
Approved: Nov 8, 2021 | RLD: No | RS: No | Type: RX